FAERS Safety Report 6184761-X (Version None)
Quarter: 2009Q2

REPORT INFORMATION
  Report Type: 
  Country: None (occurrence: None)
  Receive Date: 20090508
  Receipt Date: 20090428
  Transmission Date: 20091009
  Serious: Yes (Other)
  Sender: FDA-Public Use
  Company Number: PHHY2009NL13389

PATIENT
  Sex: Male
  Weight: 108 kg

DRUGS (8)
  1. DIOVAN [Suspect]
     Dosage: 2 X 160 MG
  2. FUROSEMIDE [Concomitant]
     Dosage: 80 MG, 1DD1
  3. CRESTOR [Concomitant]
     Dosage: 20 MG, 1DD1
  4. OXAZEPAM [Concomitant]
     Dosage: 10 MG, 1DD1
  5. TEMAZEPAM [Concomitant]
     Dosage: 10 MG, 1DD1
  6. ASCAL [Concomitant]
     Dosage: 80 MG
  7. PERSANTINE [Concomitant]
     Dosage: 100 MG
  8. SELOKEEN ZOC [Concomitant]
     Dosage: 200 MG

REACTIONS (4)
  - BLOOD CHOLESTEROL INCREASED [None]
  - BLOOD TRIGLYCERIDES INCREASED [None]
  - DYSPNOEA [None]
  - HYPERLIPIDAEMIA [None]
